FAERS Safety Report 16332614 (Version 2)
Quarter: 2019Q2

REPORT INFORMATION
  Report Type: Spontaneous
  Country: US (occurrence: US)
  Receive Date: 20190520
  Receipt Date: 20190613
  Transmission Date: 20190711
  Serious: No
  Sender: FDA-Public Use
  Company Number: US-PFIZER INC-2019207607

PATIENT
  Age: 65 Year

DRUGS (2)
  1. VENCLEXTA [Interacting]
     Active Substance: VENETOCLAX
     Dosage: 100 MG, UNK
  2. VFEND [Suspect]
     Active Substance: VORICONAZOLE
     Dosage: 200 MG, 2X/DAY [TAKE ONE TAB BY MOUTH EVERY 12 HOURS]
     Route: 048

REACTIONS (1)
  - Drug interaction [Unknown]
